FAERS Safety Report 5412149-5 (Version None)
Quarter: 2007Q3

REPORT INFORMATION
  Report Type: 
  Country: None (occurrence: None)
  Receive Date: 20070809
  Receipt Date: 20070724
  Transmission Date: 20080115
  Serious: Yes (Other)
  Sender: FDA-Public Use
  Company Number: 016849

PATIENT
  Age: 35 Year
  Sex: Male

DRUGS (3)
  1. ZONISAMIDE (ZONISAMIDE) CAPSULE, 25 MG [Suspect]
     Indication: WEIGHT DECREASED
  2. PHENTERMINE [Concomitant]
  3. TOPIRAMATE [Concomitant]

REACTIONS (3)
  - CHOLESTASIS [None]
  - VANISHING BILE DUCT SYNDROME [None]
  - WEIGHT DECREASED [None]
